FAERS Safety Report 14554162 (Version 1)
Quarter: 2018Q1

REPORT INFORMATION
  Report Type: Spontaneous
  Country: US (occurrence: US)
  Receive Date: 20180220
  Receipt Date: 20180220
  Transmission Date: 20180509
  Serious: Yes (Other)
  Sender: FDA-Public Use
  Company Number: US-RISING PHARMACEUTICALS, INC.-2018RIS00066

PATIENT
  Sex: Female

DRUGS (1)
  1. MECLIZINE HYDROCHLORIDE. [Suspect]
     Active Substance: MECLIZINE HYDROCHLORIDE
     Indication: LABYRINTHITIS

REACTIONS (5)
  - Atrial fibrillation [Unknown]
  - Presyncope [Unknown]
  - Off label use [Unknown]
  - Urinary tract infection [Unknown]
  - Blood pressure systolic decreased [Unknown]
